FAERS Safety Report 23994034 (Version 1)
Quarter: 2024Q2

REPORT INFORMATION
  Report Type: Spontaneous
  Country: GB (occurrence: GB)
  Receive Date: 20240620
  Receipt Date: 20240620
  Transmission Date: 20240716
  Serious: Yes (Disabling, Other)
  Sender: FDA-Public Use
  Company Number: None

PATIENT
  Age: 33 Year
  Sex: Male
  Weight: 100 kg

DRUGS (3)
  1. OFLOXACIN [Suspect]
     Active Substance: OFLOXACIN
     Dosage: DURATION: 2 DAYS
     Route: 065
     Dates: start: 20240513, end: 20240514
  2. ACETAMINOPHEN [Concomitant]
     Active Substance: ACETAMINOPHEN
     Indication: Groin pain
     Dates: start: 20240501
  3. IBUPROFEN [Concomitant]
     Active Substance: IBUPROFEN
     Indication: Groin pain
     Dates: start: 20240501

REACTIONS (8)
  - Tendonitis [Not Recovered/Not Resolved]
  - Medication error [Unknown]
  - Tendon pain [Not Recovered/Not Resolved]
  - Gait disturbance [Not Recovered/Not Resolved]
  - Anxiety [Not Recovered/Not Resolved]
  - Asthenia [Not Recovered/Not Resolved]
  - Panic attack [Not Recovered/Not Resolved]
  - Depersonalisation/derealisation disorder [Not Recovered/Not Resolved]

NARRATIVE: CASE EVENT DATE: 20240514
